FAERS Safety Report 21697295 (Version 4)
Quarter: 2025Q1

REPORT INFORMATION
  Report Type: Report from Study
  Country: CO (occurrence: CO)
  Receive Date: 20221208
  Receipt Date: 20250114
  Transmission Date: 20250409
  Serious: Yes (Other)
  Sender: NOVARTIS
  Company Number: CO-002147023-NVSC2022CO027915

PATIENT
  Sex: Male
  Weight: 95 kg

DRUGS (2)
  1. COSENTYX [Suspect]
     Active Substance: SECUKINUMAB
     Indication: Psoriasis
     Route: 065
  2. COSENTYX [Suspect]
     Active Substance: SECUKINUMAB
     Dosage: 300 MG, QMO
     Route: 058
     Dates: start: 20190413

REACTIONS (12)
  - Hypoacusis [Unknown]
  - Skin haemorrhage [Unknown]
  - Irritability [Unknown]
  - Psoriasis [Unknown]
  - Rash [Unknown]
  - Skin burning sensation [Unknown]
  - Dysstasia [Unknown]
  - Malaise [Unknown]
  - Gait inability [Unknown]
  - Arthralgia [Unknown]
  - Swelling [Unknown]
  - Dry skin [Unknown]
